FAERS Safety Report 7903548-8 (Version None)
Quarter: 2011Q4

REPORT INFORMATION
  Report Type: 
  Country: None (occurrence: None)
  Receive Date: 20111109
  Receipt Date: 20111109
  Transmission Date: 20120403
  Serious: Yes (Hospitalization)
  Sender: FDA-Public Use
  Company Number: None

PATIENT
  Age: 62 Year
  Sex: Male
  Weight: 78.8 kg

DRUGS (1)
  1. AMINOLEVULINIC ACID [Suspect]
     Dosage: 1782 MG
     Route: 048
     Dates: start: 20110728, end: 20110728

REACTIONS (5)
  - VOMITING [None]
  - ALANINE AMINOTRANSFERASE INCREASED [None]
  - NAUSEA [None]
  - ASPARTATE AMINOTRANSFERASE INCREASED [None]
  - NEOPLASM PROGRESSION [None]
